FAERS Safety Report 4858515-8 (Version None)
Quarter: 2005Q4

REPORT INFORMATION
  Report Type: 
  Country: None (occurrence: None)
  Receive Date: 20051219
  Receipt Date: 20050816
  Transmission Date: 20060501
  Serious: No
  Sender: FDA-Public Use
  Company Number: US-GLAXOSMITHKLINE-A0570388A

PATIENT
  Age: 55 Year
  Sex: Male

DRUGS (2)
  1. NICODERM CQ [Suspect]
     Dates: start: 20050812, end: 20050816
  2. ANTI-HYPERCHOLESTEROLAEMIC [Concomitant]

REACTIONS (1)
  - HEADACHE [None]
